FAERS Safety Report 23240195 (Version 1)
Quarter: 2023Q4

REPORT INFORMATION
  Report Type: Spontaneous
  Country: US (occurrence: None)
  Receive Date: 20231128
  Receipt Date: 20231128
  Transmission Date: 20240110
  Serious: Yes (Death)
  Sender: FDA-Public Use
  Company Number: None

PATIENT
  Age: 79 Year
  Sex: Female

DRUGS (22)
  1. AUSTEDO [Suspect]
     Active Substance: DEUTETRABENAZINE
     Indication: Huntington^s disease
     Dosage: FREQUENCY : TWICE A DAY;?
     Route: 048
  2. Acetaminophen 325 mg tabs [Concomitant]
  3. Amlodipine 10 mg tabs [Concomitant]
  4. Austedo 12 mg tabs [Concomitant]
  5. Aspirin 81 mg tabs [Concomitant]
  6. Carvedilol 25 mg tabs [Concomitant]
  7. Co-enzyme q-10 400 mg soft gels [Concomitant]
  8. Ezetimibe 10 mg tabs [Concomitant]
  9. Fish oil 1000 mg capsules [Concomitant]
  10. Flonase nasal spary [Concomitant]
  11. Insulin Glargine 100 u/ml [Concomitant]
  12. Insulin lispro 100 u/ml [Concomitant]
  13. Isosorbide mononitrate 120 mg [Concomitant]
  14. JARDIANCE [Concomitant]
     Active Substance: EMPAGLIFLOZIN
  15. Omega 3 capsules [Concomitant]
  16. Metamucil powder [Concomitant]
  17. VITAMINS [Concomitant]
     Active Substance: VITAMINS
  18. Pantoprazole 20 mg tabs [Concomitant]
  19. Notroglycerine 0.4MG SL tabs [Concomitant]
  20. Miralax powder , vitamin D3 1000 UNITS [Concomitant]
  21. Rosuvastatin 10 mg tabs , Valsartan 160 mg [Concomitant]
  22. Senna 8.6 mg , spironolactone 100 mg [Concomitant]

REACTIONS (1)
  - Malaise [None]

NARRATIVE: CASE EVENT DATE: 20231126
